FAERS Safety Report 12987461 (Version 1)
Quarter: 2016Q4

REPORT INFORMATION
  Report Type: Spontaneous
  Country: US (occurrence: US)
  Receive Date: 20161130
  Receipt Date: 20161130
  Transmission Date: 20170207
  Serious: Yes (Other)
  Sender: FDA-Public Use
  Company Number: None

PATIENT
  Age: 21 Year
  Sex: Female
  Weight: 63 kg

DRUGS (2)
  1. ZONISAMIDE 100MG CAPSULE GLENMARK PHARMACEUTICALS [Suspect]
     Active Substance: ZONISAMIDE
     Dates: start: 2013
  2. LAMOTRIGINE 100MG TABLET [Suspect]
     Active Substance: LAMOTRIGINE
     Dates: start: 2015

REACTIONS (2)
  - Seizure [None]
  - Product substitution issue [None]

NARRATIVE: CASE EVENT DATE: 201304
